FAERS Safety Report 7532804-0 (Version None)
Quarter: 2011Q2

REPORT INFORMATION
  Report Type: 
  Country: None (occurrence: None)
  Receive Date: 20110608
  Receipt Date: 20110601
  Transmission Date: 20111010
  Serious: Yes (Other)
  Sender: FDA-Public Use
  Company Number: B0724803A

PATIENT
  Age: 71 Year
  Sex: Female

DRUGS (3)
  1. LAPATINIB [Suspect]
     Route: 048
     Dates: start: 20090401
  2. ANTIBIOTIC [Concomitant]
     Indication: BRONCHITIS
  3. CAPECITABINE [Suspect]
     Route: 065
     Dates: start: 20090401

REACTIONS (6)
  - ERYTHEMA [None]
  - HAEMOPTYSIS [None]
  - PALMAR-PLANTAR ERYTHRODYSAESTHESIA SYNDROME [None]
  - CONDITION AGGRAVATED [None]
  - DISEASE PROGRESSION [None]
  - ABDOMINAL PAIN [None]
